FAERS Safety Report 8255686-0 (Version None)
Quarter: 2012Q2

REPORT INFORMATION
  Report Type: 
  Country: None (occurrence: None)
  Receive Date: 20120403
  Receipt Date: 20120403
  Transmission Date: 20120825
  Serious: No
  Sender: FDA-Public Use
  Company Number: None

PATIENT
  Age: 62 Year
  Sex: Female
  Weight: 58.059 kg

DRUGS (2)
  1. LEVOFLOXACIN [Suspect]
     Indication: PNEUMONIA
     Dosage: 500MG
     Route: 048
     Dates: start: 20120321, end: 20120327
  2. LEVOFLOXACIN [Suspect]
     Indication: SINUS DISORDER
     Dosage: 500MG
     Route: 048
     Dates: start: 20120321, end: 20120327

REACTIONS (4)
  - EUPHORIC MOOD [None]
  - MUSCULOSKELETAL PAIN [None]
  - GAIT DISTURBANCE [None]
  - PAIN IN EXTREMITY [None]
